FAERS Safety Report 6076402-7 (Version None)
Quarter: 2009Q1

REPORT INFORMATION
  Report Type: 
  Country: None (occurrence: None)
  Receive Date: 20090209
  Receipt Date: 20090128
  Transmission Date: 20090719
  Serious: Yes (Death, Disabling)
  Sender: FDA-Public Use
  Company Number: 005039

PATIENT
  Age: 58 Year
  Sex: Female

DRUGS (6)
  1. BUSULFEX [Suspect]
     Indication: STEM CELL TRANSPLANT
     Dosage: 6.7 ML, QID INTRAVENOUS
     Route: 042
     Dates: start: 20070810, end: 20070813
  2. CYCLOPHOSPHAMIDE [Concomitant]
  3. PHENYTOIN [Concomitant]
  4. FILGRASTIM (FILGRASTIM) [Concomitant]
  5. METHOTREXATE [Concomitant]
  6. TACROLIMUS [Concomitant]

REACTIONS (20)
  - ALANINE AMINOTRANSFERASE INCREASED [None]
  - ANOREXIA [None]
  - ASPARTATE AMINOTRANSFERASE INCREASED [None]
  - BLOOD ALKALINE PHOSPHATASE INCREASED [None]
  - BLOOD CREATININE INCREASED [None]
  - BLOOD GLUCOSE INCREASED [None]
  - BLOOD LACTATE DEHYDROGENASE INCREASED [None]
  - BLOOD TRIGLYCERIDES INCREASED [None]
  - BONE MARROW TRANSPLANT REJECTION [None]
  - CYTOMEGALOVIRUS VIRAEMIA [None]
  - DIARRHOEA [None]
  - ENGRAFT FAILURE [None]
  - GAMMA-GLUTAMYLTRANSFERASE INCREASED [None]
  - HYPERKALAEMIA [None]
  - HYPOKALAEMIA [None]
  - HYPOMAGNESAEMIA [None]
  - HYPONATRAEMIA [None]
  - INFECTION [None]
  - MALIGNANT NEOPLASM PROGRESSION [None]
  - STOMATITIS [None]
